FAERS Safety Report 10584569 (Version 1)
Quarter: 2014Q4

REPORT INFORMATION
  Report Type: Spontaneous
  Country: US (occurrence: US)
  Receive Date: 20141114
  Receipt Date: 20141114
  Transmission Date: 20150529
  Serious: No
  Sender: FDA-Public Use
  Company Number: US-BAUSCH-SYM-2014-21922

PATIENT
  Sex: Female

DRUGS (1)
  1. ACANYA [Suspect]
     Active Substance: BENZOYL PEROXIDE\CLINDAMYCIN PHOSPHATE
     Indication: ACNE
     Route: 061

REACTIONS (3)
  - Drug ineffective [Recovered/Resolved]
  - Application site paraesthesia [Recovered/Resolved]
  - Skin tightness [Recovered/Resolved]
